FAERS Safety Report 13256493 (Version 2)
Quarter: 2017Q1

REPORT INFORMATION
  Report Type: Spontaneous
  Country: PE (occurrence: PE)
  Receive Date: 20170221
  Receipt Date: 20170228
  Transmission Date: 20170428
  Serious: No
  Sender: FDA-Public Use
  Company Number: PE-PFIZER INC-2017074071

PATIENT
  Age: 81 Year
  Sex: Female

DRUGS (1)
  1. LYRICA [Suspect]
     Active Substance: PREGABALIN
     Indication: PARKINSON^S DISEASE
     Dosage: 300 MG, DAILY (1 CPASULE OF 150MG AND 2 CAPSULES OF 75MG)

REACTIONS (1)
  - Product use issue [Unknown]
